FAERS Safety Report 8589925-3 (Version None)
Quarter: 2012Q3

REPORT INFORMATION
  Report Type: 
  Country: None (occurrence: None)
  Receive Date: 20120813
  Receipt Date: 19950907
  Transmission Date: 20120928
  Serious: Yes (Hospitalization)
  Sender: FDA-Public Use
  Company Number: US-ROCHE-1098806

PATIENT
  Sex: Female

DRUGS (11)
  1. HEPARIN [Concomitant]
     Dosage: INCREASED
     Dates: start: 19950812
  2. ACTIVASE [Suspect]
     Route: 042
  3. LOPRESSOR [Concomitant]
     Dosage: 3 DOSES WERE GIVEN
     Route: 042
  4. ACTIVASE [Suspect]
     Indication: ACUTE MYOCARDIAL INFARCTION
     Dates: start: 19950811
  5. ACTIVASE [Suspect]
  6. LOPRESSOR [Concomitant]
     Route: 042
     Dates: start: 19950811
  7. ACTIVASE [Suspect]
     Route: 040
  8. HEPARIN [Concomitant]
     Route: 042
     Dates: start: 19950811
  9. ASPIRIN [Concomitant]
     Route: 048
     Dates: start: 19950811
  10. LOPRESSOR [Concomitant]
     Dosage: DECREASED
     Dates: start: 19950812
  11. LOPRESSOR [Concomitant]
     Route: 048

REACTIONS (2)
  - SINUS BRADYCARDIA [None]
  - CARDIAC FAILURE CONGESTIVE [None]
